FAERS Safety Report 9519033 (Version 2)
Quarter: 2013Q3

REPORT INFORMATION
  Report Type: Spontaneous
  Country: ZA (occurrence: None)
  Receive Date: 20130910
  Receipt Date: 20130916
  Transmission Date: 20140515
  Serious: Yes (Death, Hospitalization, Other)
  Sender: FDA-Public Use
  Company Number: AUR-APL-2013-07557

PATIENT
  Age: 81 Year
  Sex: Male

DRUGS (10)
  1. CEFUROXIME [Suspect]
     Indication: BRONCHITIS
     Dosage: 1000 MG (500 MG, 2 IN 1 D)
     Route: 048
     Dates: start: 20100116, end: 20100121
  2. OSTEOBON(ALENDRONATE SODIUM) [Concomitant]
  3. CALCIBONE CON VITAMINA D3(MAXUCAL D) [Concomitant]
  4. METFORMIN(METFORMIN) [Concomitant]
  5. ELTROXIN(LEVOTHYROXINE SODIUM) [Concomitant]
  6. GLUCOMET(GLIBOMET) [Concomitant]
  7. AZAPRESS(AZATHIOPRINE) [Concomitant]
  8. VITAMIN K(PHYTOMENADIONE) [Concomitant]
  9. ENOXAPARIN (ENOXAPARIN) [Suspect]
  10. WARFARIN (WARFARIN) [Suspect]

REACTIONS (6)
  - Pneumonia [None]
  - Metastases to lung [None]
  - Toxicity to various agents [None]
  - Melaena [None]
  - General physical health deterioration [None]
  - Small cell carcinoma [None]
